FAERS Safety Report 6571472-1 (Version None)
Quarter: 2010Q1

REPORT INFORMATION
  Report Type: 
  Country: None (occurrence: None)
  Receive Date: 20100205
  Receipt Date: 20100127
  Transmission Date: 20100710
  Serious: Yes (Life-Threatening, Hospitalization, Other)
  Sender: FDA-Public Use
  Company Number: TR-SANOFI-AVENTIS-2010SA005430

PATIENT
  Age: 44 Year
  Sex: Female

DRUGS (7)
  1. LANTUS [Suspect]
     Indication: TYPE 2 DIABETES MELLITUS
     Dosage: DOSE:10 UNIT(S)
     Route: 058
     Dates: start: 20091001
  2. DIGITALIS TAB [Concomitant]
     Indication: CARDIOMYOPATHY
     Dosage: 0.25/0.50 TABLET
     Route: 048
     Dates: start: 20080101
  3. CORYOL [Concomitant]
     Dosage: 1.25
     Route: 048
     Dates: start: 20050101
  4. ASPIRIN [Concomitant]
     Indication: CARDIOMYOPATHY
     Route: 048
     Dates: start: 20050101
  5. FUROSEMID [Concomitant]
     Indication: CARDIOMYOPATHY
     Route: 048
     Dates: start: 20050101
  6. SPIRONOLACTONE [Concomitant]
     Indication: CARDIOMYOPATHY
     Route: 048
     Dates: start: 20050101
  7. SSRI [Concomitant]
     Indication: DEPRESSION
     Dosage: 10
     Route: 048
     Dates: start: 20080101

REACTIONS (2)
  - CEREBROVASCULAR ACCIDENT [None]
  - FACIAL PALSY [None]
